FAERS Safety Report 16326389 (Version 1)
Quarter: 2019Q2

REPORT INFORMATION
  Report Type: Spontaneous
  Country: JP (occurrence: JP)
  Receive Date: 20190517
  Receipt Date: 20190517
  Transmission Date: 20190711
  Serious: Yes (Hospitalization)
  Sender: FDA-Public Use
  Company Number: JP-009507513-1905JPN001425J

PATIENT
  Age: 79 Year
  Sex: Male
  Weight: 57 kg

DRUGS (14)
  1. DICLOFENAC SODIUM. [Concomitant]
     Active Substance: DICLOFENAC SODIUM
     Route: 065
  2. NEXIUM [Concomitant]
     Active Substance: ESOMEPRAZOLE MAGNESIUM
     Dosage: UNK
     Route: 065
     Dates: start: 20181202
  3. CUBICIN [Suspect]
     Active Substance: DAPTOMYCIN
     Dosage: UNK
     Route: 065
     Dates: start: 20181225, end: 20181231
  4. MINOCYCLINE HYDROCHLORIDE. [Suspect]
     Active Substance: MINOCYCLINE HYDROCHLORIDE
     Indication: ARTHRITIS BACTERIAL
     Dosage: 100 MILLIGRAM, QD
     Route: 048
     Dates: start: 20181215, end: 20181228
  5. VANCOMYCIN HYDROCHLORIDE. [Suspect]
     Active Substance: VANCOMYCIN HYDROCHLORIDE
     Indication: ARTHRITIS BACTERIAL
     Dosage: 1 GRAM, BID
     Route: 065
     Dates: start: 20181208, end: 20181225
  6. TRAMCET [Suspect]
     Active Substance: ACETAMINOPHEN\TRAMADOL
     Indication: PAIN
     Dosage: 1 DOSAGE FORM, BID
     Route: 048
     Dates: start: 20181223, end: 20181227
  7. MIYA-BM [Concomitant]
     Active Substance: CLOSTRIDIUM BUTYRICUM SPORES STRAIN M-55
     Dosage: UNK
     Route: 065
     Dates: start: 20181208
  8. NOVAMIN (PROCHLORPERAZINE MALEATE) [Suspect]
     Active Substance: PROCHLORPERAZINE MALEATE
     Dosage: 5 MILLIGRAM, BID
     Route: 065
     Dates: start: 20181223, end: 20181227
  9. MAGNESIUM OXIDE. [Suspect]
     Active Substance: MAGNESIUM OXIDE
     Dosage: 250 MILLIGRAM, TID
     Route: 065
     Dates: start: 20181216
  10. METILON [Concomitant]
     Active Substance: METAMIZOLE SODIUM
     Route: 065
  11. LUNESTA [Concomitant]
     Active Substance: ESZOPICLONE
     Dosage: UNK
     Route: 065
     Dates: start: 20181205
  12. WARFARIN [Concomitant]
     Active Substance: WARFARIN
     Dosage: UNK
     Route: 065
     Dates: end: 20181228
  13. LYRICA [Suspect]
     Active Substance: PREGABALIN
     Dosage: 25 MILLIGRAM, BID
     Route: 065
     Dates: start: 20181219, end: 20181227
  14. CASODEX [Concomitant]
     Active Substance: BICALUTAMIDE
     Dosage: UNK
     Route: 065
     Dates: end: 20181228

REACTIONS (2)
  - Stevens-Johnson syndrome [Recovered/Resolved]
  - Toxic skin eruption [Recovered/Resolved]

NARRATIVE: CASE EVENT DATE: 20181227
